FAERS Safety Report 8075167-7 (Version None)
Quarter: 2012Q1

REPORT INFORMATION
  Report Type: 
  Country: None (occurrence: None)
  Receive Date: 20120127
  Receipt Date: 20120125
  Transmission Date: 20120608
  Serious: Yes (Other)
  Sender: FDA-Public Use
  Company Number: US-BAYER-2012-008470

PATIENT
  Age: 30 Year
  Sex: Female

DRUGS (2)
  1. MAGNEVIST [Suspect]
     Indication: PARAESTHESIA
  2. MAGNEVIST [Suspect]
     Indication: NUCLEAR MAGNETIC RESONANCE IMAGING
     Dosage: 14 ML, UNK
     Route: 042
     Dates: start: 20120124

REACTIONS (2)
  - WHEEZING [None]
  - DYSPNOEA [None]
